FAERS Safety Report 20152265 (Version 1)
Quarter: 2021Q4

REPORT INFORMATION
  Report Type: Spontaneous
  Country: US (occurrence: US)
  Receive Date: 20211206
  Receipt Date: 20211206
  Transmission Date: 20220303
  Serious: Yes (Other)
  Sender: FDA-Public Use
  Company Number: US-OTSUKA-2021_041659

PATIENT
  Age: 75 Year
  Sex: Male

DRUGS (2)
  1. ARIPIPRAZOLE [Suspect]
     Active Substance: ARIPIPRAZOLE
     Indication: Bipolar disorder
     Dosage: 10MG AT NIGHT
     Route: 065
     Dates: start: 20211122
  2. LITHIUM [Suspect]
     Active Substance: LITHIUM
     Indication: Bipolar disorder
     Dosage: 2 TABLETS DAILY
     Route: 065
     Dates: end: 202111

REACTIONS (3)
  - Hallucination [Unknown]
  - Chronic kidney disease [Unknown]
  - Dizziness [Unknown]

NARRATIVE: CASE EVENT DATE: 20211127
